FAERS Safety Report 25760378 (Version 1)
Quarter: 2025Q3

REPORT INFORMATION
  Report Type: Spontaneous
  Country: EU (occurrence: EU)
  Receive Date: 20250904
  Receipt Date: 20250904
  Transmission Date: 20251021
  Serious: Yes (Death)
  Sender: SAMSUNG BIOEPIS
  Company Number: EU-SAMSUNG BIOEPIS-SB-2025-29740

PATIENT
  Age: 49 Year
  Sex: Female

DRUGS (5)
  1. BEVACIZUMAB [Suspect]
     Active Substance: BEVACIZUMAB
     Indication: Vaginal cancer metastatic
  2. TRASTUZUMAB [Suspect]
     Active Substance: TRASTUZUMAB
     Indication: Vaginal cancer metastatic
     Dosage: TRASTUZUMAB 4 MG/M2 AS LOADING DOSE FOLLOWED BY 2 MG/M2 Q3W;
  3. CARBOPLATIN [Suspect]
     Active Substance: CARBOPLATIN
     Indication: Vaginal cancer metastatic
     Dosage: CARBOPLATIN AUC 5;
  4. PACLITAXEL [Suspect]
     Active Substance: PACLITAXEL
     Indication: Vaginal cancer metastatic
     Dosage: PACLITAXTEL USED WITH TRASTUZUMAB;
  5. PACLITAXEL [Suspect]
     Active Substance: PACLITAXEL
     Dosage: PACLITAXEL USED WITH BEVACIZUMAB;

REACTIONS (2)
  - Disease progression [Fatal]
  - Off label use [Unknown]
